FAERS Safety Report 13047536 (Version 1)
Quarter: 2016Q4

REPORT INFORMATION
  Report Type: Spontaneous
  Country: US (occurrence: US)
  Receive Date: 20161220
  Receipt Date: 20161220
  Transmission Date: 20170207
  Serious: No
  Sender: FDA-Public Use
  Company Number: GXBR2016US001789

PATIENT
  Age: 60 Year
  Sex: Male
  Weight: 124.72 kg

DRUGS (2)
  1. TERAZOSIN HCL TABLETS [Suspect]
     Active Substance: TERAZOSIN HYDROCHLORIDE
     Indication: HYPERTENSION
  2. TERAZOSIN HCL TABLETS [Suspect]
     Active Substance: TERAZOSIN HYDROCHLORIDE
     Indication: BENIGN PROSTATIC HYPERPLASIA
     Dosage: 1/2 OF A 10 MG CAPSULE, QD
     Route: 048
     Dates: start: 20160502, end: 20160506

REACTIONS (2)
  - Wrong technique in product usage process [Recovered/Resolved]
  - Dizziness [Recovered/Resolved]

NARRATIVE: CASE EVENT DATE: 20160502
